FAERS Safety Report 6206850-3 (Version None)
Quarter: 2009Q2

REPORT INFORMATION
  Report Type: 
  Country: None (occurrence: None)
  Receive Date: 20090528
  Receipt Date: 20090427
  Transmission Date: 20091009
  Serious: No
  Sender: FDA-Public Use
  Company Number: US-AMGEN-US344605

PATIENT
  Sex: Female

DRUGS (1)
  1. NPLATE [Suspect]
     Indication: IDIOPATHIC THROMBOCYTOPENIC PURPURA
     Dates: start: 20090424

REACTIONS (5)
  - BURNING SENSATION [None]
  - INSOMNIA [None]
  - JOINT SWELLING [None]
  - PAIN IN EXTREMITY [None]
  - PARAESTHESIA [None]
